FAERS Safety Report 6858023-9 (Version None)
Quarter: 2010Q2

REPORT INFORMATION
  Report Type: 
  Country: None (occurrence: None)
  Receive Date: 20100526
  Receipt Date: 20090427
  Transmission Date: 20101027
  Serious: Yes (Other)
  Sender: FDA-Public Use
  Company Number: 284524

PATIENT
  Age: 53 Year
  Sex: Female
  Weight: 50.8 kg

DRUGS (6)
  1. ACTIVELLA [Suspect]
     Indication: HORMONE REPLACEMENT THERAPY
     Dosage: 1 MG/ 0.5MG, ORAL
     Route: 048
     Dates: start: 20020911, end: 20070226
  2. PREMPRO [Suspect]
     Indication: HORMONE REPLACEMENT THERAPY
     Dosage: 0.625/2.5 MG, ORAL ; 0.45/1.5 MG, ORAL
     Route: 048
     Dates: start: 20000801, end: 20020701
  3. PREMPRO [Suspect]
     Indication: HORMONE REPLACEMENT THERAPY
     Dosage: 0.625/2.5 MG, ORAL ; 0.45/1.5 MG, ORAL
     Route: 048
     Dates: start: 20070227, end: 20080410
  4. CRESTOR [Concomitant]
  5. RECLAST [Concomitant]
  6. CALTRATE + D (CALCIUM CARBONATE, COLECALCIFEROL) [Concomitant]

REACTIONS (1)
  - BREAST CANCER [None]
